FAERS Safety Report 14034253 (Version 2)
Quarter: 2018Q4

REPORT INFORMATION
  Report Type: Spontaneous
  Country: US (occurrence: US)
  Receive Date: 20171003
  Receipt Date: 20181003
  Transmission Date: 20190204
  Serious: No
  Sender: FDA-Public Use
  Company Number: US-TEVA-803182ACC

PATIENT
  Sex: Male

DRUGS (2)
  1. CLONAZEPAM. [Suspect]
     Active Substance: CLONAZEPAM
     Indication: RESTLESS LEGS SYNDROME
     Dosage: 0.5 CLONAZEPAM
  2. CLONAZEPAM. [Suspect]
     Active Substance: CLONAZEPAM
     Indication: NERVOUS SYSTEM DISORDER

REACTIONS (5)
  - Drug ineffective for unapproved indication [Unknown]
  - Product quality issue [Unknown]
  - Product use in unapproved indication [Unknown]
  - Product storage error [Unknown]
  - Adverse event [Unknown]
